FAERS Safety Report 4373798-9 (Version None)
Quarter: 2004Q2

REPORT INFORMATION
  Report Type: 
  Country: None (occurrence: None)
  Receive Date: 20040601
  Receipt Date: 20030623
  Transmission Date: 20050107
  Serious: No
  Sender: FDA-Public Use
  Company Number: 137042USA

PATIENT
  Sex: Female

DRUGS (4)
  1. SOTALOL HCL [Suspect]
     Indication: ATRIAL FIBRILLATION
     Dosage: 80 MILLIGRAM QD ORAL
     Route: 048
     Dates: start: 20010101
  2. SYNTHROID [Concomitant]
  3. LANOXIN [Concomitant]
  4. MIACALCIN [Concomitant]

REACTIONS (1)
  - HOT FLUSH [None]
